FAERS Safety Report 4361007-6 (Version None)
Quarter: 2004Q2

REPORT INFORMATION
  Report Type: 
  Country: None (occurrence: None)
  Receive Date: 20040517
  Receipt Date: 20040506
  Transmission Date: 20050107
  Serious: Yes (Hospitalization)
  Sender: FDA-Public Use
  Company Number: 2004212439FR

PATIENT
  Age: 73 Year
  Sex: Male

DRUGS (4)
  1. ALDACTONE [Suspect]
     Indication: ESSENTIAL HYPERTENSION
     Dosage: UNK, UNK, ORAL
     Route: 048
     Dates: end: 20040324
  2. COAPROVEL (IRBESARTAN+HYDROCHLOROTHIAZIDE) [Suspect]
     Indication: ESSENTIAL HYPERTENSION
     Dosage: UNK, UNK, ORAL
     Route: 048
     Dates: end: 20040324
  3. GLUCOPHAGE [Concomitant]
  4. AMARYL [Concomitant]

REACTIONS (7)
  - ASTHENIA [None]
  - BUNDLE BRANCH BLOCK [None]
  - ELECTROCARDIOGRAM QRS COMPLEX PROLONGED [None]
  - FALL [None]
  - HYPERKALAEMIA [None]
  - HYPOTENSION [None]
  - RENAL FAILURE ACUTE [None]
